FAERS Safety Report 10053754 (Version 1)
Quarter: 2014Q2

REPORT INFORMATION
  Report Type: Report from Study
  Country: MX (occurrence: MX)
  Receive Date: 20140402
  Receipt Date: 20140402
  Transmission Date: 20141212
  Serious: Yes (Life-Threatening, Other)
  Sender: FDA-Public Use
  Company Number: PHHY2014MX039323

PATIENT
  Age: 67 Year
  Sex: Female

DRUGS (4)
  1. ZOMETA [Suspect]
     Indication: OSTEOPOROSIS
     Dosage: 4 MG, MONTHLY
     Route: 042
     Dates: start: 201309
  2. ZOMETA [Suspect]
     Indication: OFF LABEL USE
     Dosage: UNK UKN, UNK
  3. STILNOX [Concomitant]
     Dosage: 1 UKN, DAILY
  4. RIVOTRIL [Concomitant]
     Dosage: UNK UKN, UNK

REACTIONS (11)
  - Apparent death [Unknown]
  - Upper limb fracture [Unknown]
  - Fracture [Unknown]
  - Breast cancer [Unknown]
  - Liver disorder [Unknown]
  - Platelet disorder [Unknown]
  - Solar lentigo [Unknown]
  - Metastases to bone [Unknown]
  - Neoplasm recurrence [Unknown]
  - Fall [Unknown]
  - Dizziness [Unknown]
